FAERS Safety Report 5859996-3 (Version None)
Quarter: 2008Q3

REPORT INFORMATION
  Report Type: 
  Country: None (occurrence: None)
  Receive Date: 20080827
  Receipt Date: 20080819
  Transmission Date: 20090109
  Serious: Yes (Hospitalization)
  Sender: FDA-Public Use
  Company Number: US-ELI_LILLY_AND_COMPANY-US200808003862

PATIENT
  Sex: Female

DRUGS (1)
  1. BYETTA [Suspect]
     Dosage: UNK, UNK
     Route: 058
     Dates: start: 20080201

REACTIONS (4)
  - BLOOD GLUCOSE DECREASED [None]
  - HOSPITALISATION [None]
  - TREMOR [None]
  - WEIGHT DECREASED [None]
